FAERS Safety Report 8862654 (Version 9)
Quarter: 2013Q3

REPORT INFORMATION
  Report Type: Spontaneous
  Country: US (occurrence: US)
  Receive Date: 20121026
  Receipt Date: 20130814
  Transmission Date: 20140515
  Serious: Yes (Hospitalization, Other)
  Sender: FDA-Public Use
  Company Number: US-009507513-1203USA02843

PATIENT
  Sex: Female

DRUGS (8)
  1. FOSAMAX [Suspect]
     Indication: OSTEOPENIA
     Dosage: 70 MG, QW
     Route: 048
     Dates: start: 199902, end: 200910
  2. FOSAMAX [Suspect]
     Indication: BONE LOSS
     Dosage: 70 MG, UNK
     Route: 048
     Dates: start: 20070814, end: 20100407
  3. FOSAMAX [Suspect]
     Indication: PELVIC FRACTURE
  4. FOSAMAX [Suspect]
     Indication: OSTEOPENIA
     Dosage: 70 MG, UNK
     Route: 048
     Dates: end: 200910
  5. FOSAMAX [Suspect]
     Indication: BONE LOSS
  6. BONIVA [Suspect]
     Indication: OSTEOPENIA
     Dosage: 150 MG, UNK
     Dates: start: 199902, end: 20100407
  7. BONIVA [Suspect]
     Indication: BONE LOSS
  8. CORTICOSTEROIDS (UNSPECIFIED) [Concomitant]
     Dates: start: 1990

REACTIONS (146)
  - Knee arthroplasty [Unknown]
  - Spinal disorder [Unknown]
  - Partial seizures [Unknown]
  - Thoracic vertebral fracture [Unknown]
  - Systemic lupus erythematosus [Unknown]
  - Systemic lupus erythematosus [Unknown]
  - Cerebrovascular accident [Not Recovered/Not Resolved]
  - Scoliosis [Unknown]
  - Spinal fracture [Unknown]
  - Syncope [Unknown]
  - Presyncope [Unknown]
  - Epilepsy [Unknown]
  - Carotid artery stenosis [Unknown]
  - Complicated migraine [Unknown]
  - Anxiety disorder [Unknown]
  - Family stress [Unknown]
  - Femur fracture [Unknown]
  - Open reduction of fracture [Unknown]
  - Transient ischaemic attack [Unknown]
  - Myocardial infarction [Unknown]
  - Jaw fracture [Unknown]
  - Osteonecrosis of jaw [Unknown]
  - Femur fracture [Unknown]
  - Low turnover osteopathy [Unknown]
  - Transient ischaemic attack [Unknown]
  - Foot fracture [Unknown]
  - Road traffic accident [Unknown]
  - Tooth disorder [Unknown]
  - Rib fracture [Recovering/Resolving]
  - Inflammatory bowel disease [Unknown]
  - Denture wearer [Unknown]
  - Joint crepitation [Unknown]
  - Osteoporosis [Unknown]
  - Intervertebral disc degeneration [Unknown]
  - Intervertebral disc protrusion [Unknown]
  - Spinal meningioma benign [Unknown]
  - Blood cholesterol increased [Unknown]
  - Arteriosclerosis [Unknown]
  - Depression [Unknown]
  - Sjogren^s syndrome [Unknown]
  - Vasculitis [Unknown]
  - Migraine [Unknown]
  - Vertebrobasilar insufficiency [Unknown]
  - Weight increased [Unknown]
  - Drug dependence [Unknown]
  - Hypoaesthesia [Unknown]
  - Cushingoid [Unknown]
  - Lumbar radiculopathy [Not Recovered/Not Resolved]
  - Lumbar spinal stenosis [Not Recovered/Not Resolved]
  - Thoracic vertebral fracture [Unknown]
  - Spinal osteoarthritis [Unknown]
  - Osteoarthritis [Unknown]
  - Osteoarthritis [Unknown]
  - Dyspnoea [Unknown]
  - Emphysema [Unknown]
  - Antiphospholipid antibodies positive [Unknown]
  - Atrial fibrillation [Unknown]
  - Diastolic dysfunction [Unknown]
  - Pulmonary hypertension [Unknown]
  - Osteoarthritis [Unknown]
  - Diverticulum [Unknown]
  - Hypercoagulation [Unknown]
  - Anxiety [Unknown]
  - Insomnia [Unknown]
  - Condition aggravated [Unknown]
  - Eye inflammation [Unknown]
  - Bursitis [Recovered/Resolved]
  - Neck injury [Unknown]
  - Fatigue [Unknown]
  - Spondylolisthesis [Unknown]
  - Intervertebral disc displacement [Unknown]
  - Intervertebral disc degeneration [Unknown]
  - Post laminectomy syndrome [Unknown]
  - Sympathetic posterior cervical syndrome [Unknown]
  - Cerebral small vessel ischaemic disease [Unknown]
  - Cerebral atrophy [Unknown]
  - Myocardial ischaemia [Not Recovered/Not Resolved]
  - Cerebral artery occlusion [Unknown]
  - Fall [Unknown]
  - Head injury [Unknown]
  - Fatigue [Unknown]
  - Dyspnoea [Unknown]
  - Orthostatic hypotension [Unknown]
  - Muscle twitching [Unknown]
  - Ventricular extrasystoles [Unknown]
  - Mixed connective tissue disease [Unknown]
  - Coagulopathy [Unknown]
  - Foot fracture [Recovering/Resolving]
  - Meniscus injury [Unknown]
  - Factor XIII deficiency [Unknown]
  - Bursitis [Unknown]
  - Sacroiliitis [Unknown]
  - Cardiac disorder [Unknown]
  - Arteriosclerosis [Unknown]
  - Dental caries [Unknown]
  - Tooth extraction [Unknown]
  - Tooth extraction [Unknown]
  - Tooth deposit [Unknown]
  - Sensitivity of teeth [Unknown]
  - Tooth fracture [Unknown]
  - Dental caries [Unknown]
  - Dental caries [Unknown]
  - Device failure [Unknown]
  - Tooth extraction [Unknown]
  - Dental caries [Unknown]
  - Device breakage [Unknown]
  - Dental caries [Unknown]
  - Device failure [Unknown]
  - Gingival pain [Unknown]
  - Periodontal inflammation [Unknown]
  - Dental caries [Unknown]
  - Toothache [Unknown]
  - Sensitivity of teeth [Unknown]
  - Gingival operation [Unknown]
  - Dental caries [Unknown]
  - Device dislocation [Unknown]
  - Tooth fracture [Unknown]
  - Periodontitis [Not Recovered/Not Resolved]
  - Dental caries [Unknown]
  - Tooth disorder [Unknown]
  - Accident [Unknown]
  - Sleep disorder [Unknown]
  - Clostridium difficile infection [Unknown]
  - Fracture [Unknown]
  - Dry mouth [Unknown]
  - Tooth fracture [Unknown]
  - Catheterisation cardiac [Unknown]
  - Procedural haemorrhage [Unknown]
  - Haemorrhagic diathesis [Unknown]
  - Glaucoma [Unknown]
  - Asthma [Unknown]
  - Arthritis [Unknown]
  - Anaemia [Unknown]
  - Blood urine present [Unknown]
  - Dysuria [Unknown]
  - Malaise [Unknown]
  - Asthenia [Unknown]
  - Gastrooesophageal reflux disease [Unknown]
  - Back pain [Not Recovered/Not Resolved]
  - Arthralgia [Unknown]
  - Constipation [Unknown]
  - Neck pain [Unknown]
  - Headache [Unknown]
  - Diarrhoea [Unknown]
  - Arthralgia [Not Recovered/Not Resolved]
  - Gastric ulcer [Unknown]
